FAERS Safety Report 18494526 (Version 1)
Quarter: 2020Q4

REPORT INFORMATION
  Report Type: Spontaneous
  Country: CZ (occurrence: CZ)
  Receive Date: 20201112
  Receipt Date: 20201112
  Transmission Date: 20210114
  Serious: Yes (Death, Life-Threatening, Hospitalization, Disabling, Other)
  Sender: FDA-Public Use
  Company Number: CZ-ACCORD-208037

PATIENT
  Age: 68 Year
  Sex: Male
  Weight: 98 kg

DRUGS (3)
  1. CAPECITABINE ACCORD [Suspect]
     Active Substance: CAPECITABINE
     Indication: COLORECTAL CANCER
     Dosage: (4TAB 500MG + 1TAB 150MG) TWICE DAILY.
     Route: 048
     Dates: start: 20200819, end: 20200901
  2. OXALIPLATIN ACCORD [Suspect]
     Active Substance: OXALIPLATIN
     Indication: COLORECTAL CANCER
     Dosage: TOTAL DOSE OF OXALIPLATIN 280.8 MG.
     Route: 042
     Dates: start: 20200819, end: 20200819
  3. ZOLOFT [Concomitant]
     Active Substance: SERTRALINE HYDROCHLORIDE
     Dosage: CHRONICAL MEDICATION TWICE A DAY
     Route: 048

REACTIONS (3)
  - Acute respiratory failure [Fatal]
  - Vomiting [Not Recovered/Not Resolved]
  - Septic shock [Fatal]

NARRATIVE: CASE EVENT DATE: 202008
